FAERS Safety Report 4730349-4 (Version None)
Quarter: 2005Q3

REPORT INFORMATION
  Report Type: 
  Country: None (occurrence: None)
  Receive Date: 20050801
  Receipt Date: 20050721
  Transmission Date: 20060218
  Serious: Yes (Other)
  Sender: FDA-Public Use
  Company Number: CA-MERCK-0507USA04135

PATIENT

DRUGS (3)
  1. CORTICOSTEROIDS (UNSPECIFIED) [Suspect]
     Route: 065
  2. ELSPAR [Suspect]
     Indication: ACUTE LYMPHOCYTIC LEUKAEMIA
     Route: 042
  3. ANTINEOPLASTIC (UNSPECIFIED) [Concomitant]
     Route: 065

REACTIONS (1)
  - PULMONARY EMBOLISM [None]
